FAERS Safety Report 9474832 (Version 1)
Quarter: 2013Q3

REPORT INFORMATION
  Report Type: Spontaneous
  Country: JP (occurrence: JP)
  Receive Date: 20130823
  Receipt Date: 20130823
  Transmission Date: 20140515
  Serious: Yes (Death, Other)
  Sender: FDA-Public Use
  Company Number: PHHY2013JP090913

PATIENT
  Age: 54 Year
  Sex: Female

DRUGS (4)
  1. MYCOPHENOLATE MOFETIL [Suspect]
     Indication: IMMUNOSUPPRESSION
  2. AZATHIOPRINE [Suspect]
     Indication: IMMUNOSUPPRESSION
  3. MIZORIBINE [Concomitant]
  4. METHYLPREDNISOLONE [Concomitant]

REACTIONS (10)
  - Respiratory failure [Fatal]
  - Progressive multifocal leukoencephalopathy [Unknown]
  - Ataxia [Unknown]
  - Hemiparesis [Unknown]
  - Dysarthria [Unknown]
  - Saccadic eye movement [Unknown]
  - Hyperreflexia [Unknown]
  - Cerebellar atrophy [Unknown]
  - Demyelination [Unknown]
  - Liver injury [Unknown]
